FAERS Safety Report 12986332 (Version 2)
Quarter: 2016Q4

REPORT INFORMATION
  Report Type: Report from Study
  Country: BR (occurrence: BR)
  Receive Date: 20161130
  Receipt Date: 20161215
  Transmission Date: 20170207
  Serious: Yes (Other)
  Sender: FDA-Public Use
  Company Number: PHHY2016BR164028

PATIENT
  Sex: Male
  Weight: 90 kg

DRUGS (2)
  1. GILENYA [Suspect]
     Active Substance: FINGOLIMOD HYDROCHLORIDE
     Indication: MULTIPLE SCLEROSIS
     Dosage: 0.5 MG, QD
     Route: 048
     Dates: start: 20160504
  2. DIPYRONE [Concomitant]
     Active Substance: DIPYRONE
     Indication: INFLUENZA LIKE ILLNESS
     Dosage: 30 DRP, EVERY 48 HOURS
     Route: 048

REACTIONS (8)
  - Pain [Unknown]
  - Obesity [Not Recovered/Not Resolved]
  - Headache [Recovering/Resolving]
  - Dysgeusia [Unknown]
  - Dry mouth [Unknown]
  - Gamma-glutamyltransferase abnormal [Unknown]
  - Gait disturbance [Not Recovered/Not Resolved]
  - Peripheral swelling [Unknown]
